FAERS Safety Report 8360378-3 (Version None)
Quarter: 2012Q1

REPORT INFORMATION
  Report Type: 
  Country: None (occurrence: None)
  Receive Date: 20120323
  Receipt Date: 20110801
  Transmission Date: 20120608
  Serious: Yes (Hospitalization)
  Sender: FDA-Public Use
  Company Number: 163-21880-11043226

PATIENT
  Age: 61 Year
  Sex: Female

DRUGS (4)
  1. REVLIMID [Suspect]
     Indication: MYELODYSPLASTIC SYNDROME
     Dosage: 5 MG, 1 IN 2 D, PO
     Route: 048
     Dates: start: 20110316
  2. CIPROFLOXACIN [Concomitant]
  3. VORICONAZOLE [Concomitant]
  4. BLOOD TRANSFUSION [Concomitant]

REACTIONS (3)
  - DRUG INTOLERANCE [None]
  - FEBRILE NEUTROPENIA [None]
  - DRUG INEFFECTIVE [None]
